FAERS Safety Report 9275600 (Version 2)
Quarter: 2013Q2

REPORT INFORMATION
  Report Type: Spontaneous
  Country: CO (occurrence: None)
  Receive Date: 20130430
  Receipt Date: 20130430
  Transmission Date: 20140414
  Serious: Yes (Other)
  Sender: FDA-Public Use
  Company Number: 2013-1595

PATIENT
  Age: 36 Year
  Sex: Female

DRUGS (1)
  1. SOMATULINE AUTOGEL [Suspect]
     Indication: ACROMEGALY
     Dosage: 120 MG (120 MG, 1 IN 28 D), INTRAMUSCULAR
     Route: 030
     Dates: start: 20080412, end: 20130408

REACTIONS (3)
  - Blighted ovum [None]
  - Maternal exposure during pregnancy [None]
  - Incorrect route of drug administration [None]
